FAERS Safety Report 7233508-4 (Version None)
Quarter: 2011Q1

REPORT INFORMATION
  Report Type: 
  Country: None (occurrence: None)
  Receive Date: 20110119
  Receipt Date: 20110110
  Transmission Date: 20110831
  Serious: Yes (Other)
  Sender: FDA-Public Use
  Company Number: US-RB-017031-10

PATIENT
  Age: 60 Year
  Sex: Female

DRUGS (2)
  1. MUCINEX DM [Suspect]
     Indication: COUGH
     Dosage: 1 TABLET TOTAL
     Route: 048
  2. MUCINEX DM [Suspect]
     Dosage: 1 TABLET TOTAL
     Route: 048

REACTIONS (4)
  - FLUSHING [None]
  - HYPERTENSION [None]
  - DISORIENTATION [None]
  - DYSPNOEA [None]
